FAERS Safety Report 4283399-9 (Version None)
Quarter: 2004Q1

REPORT INFORMATION
  Report Type: 
  Country: None (occurrence: None)
  Receive Date: 20040129
  Receipt Date: 20040115
  Transmission Date: 20041129
  Serious: No
  Sender: FDA-Public Use
  Company Number: 2003AP03890

PATIENT
  Age: 56 Year
  Sex: Male
  Weight: 49.5 kg

DRUGS (8)
  1. SEROQUEL [Suspect]
     Indication: SCHIZOPHRENIA
     Dosage: 100 MG QID PO
     Route: 048
     Dates: start: 20020911, end: 20031119
  2. VENCOLL [Concomitant]
  3. HERBAL ONT [Concomitant]
  4. ALOSENIN [Concomitant]
  5. GASCON [Concomitant]
  6. MAGNESIUM OXIDE [Concomitant]
  7. LEVOTOMIN [Concomitant]
  8. DORAL [Concomitant]

REACTIONS (4)
  - GENERAL NUTRITION DISORDER [None]
  - MONOCYTE PERCENTAGE INCREASED [None]
  - STOOL ANALYSIS ABNORMAL [None]
  - WHITE BLOOD CELL COUNT DECREASED [None]
